FAERS Safety Report 4498767-X (Version None)
Quarter: 2004Q4

REPORT INFORMATION
  Report Type: 
  Country: None (occurrence: None)
  Receive Date: 20041108
  Receipt Date: 20041028
  Transmission Date: 20050328
  Serious: Yes (Hospitalization)
  Sender: FDA-Public Use
  Company Number: 2004-10-1903

PATIENT
  Age: 84 Year
  Sex: Male
  Weight: 95.2554 kg

DRUGS (2)
  1. TEMODAR [Suspect]
     Indication: METASTATIC MALIGNANT MELANOMA
     Dosage: 300MG QDX5D ORAL
     Route: 048
     Dates: start: 20040402
  2. THALIDOMIDE CAPSULES [Suspect]
     Indication: METASTATIC MALIGNANT MELANOMA
     Dosage: 50 MG QD ORAL
     Route: 048
     Dates: start: 20040712, end: 20040722

REACTIONS (3)
  - GASTROINTESTINAL HAEMORRHAGE [None]
  - METASTASES TO LUNG [None]
  - PANCYTOPENIA [None]
